FAERS Safety Report 8256672-7 (Version None)
Quarter: 2012Q1

REPORT INFORMATION
  Report Type: 
  Country: None (occurrence: None)
  Receive Date: 20120322
  Receipt Date: 20120227
  Transmission Date: 20120608
  Serious: Yes (Death, Hospitalization)
  Sender: FDA-Public Use
  Company Number: UTC-015597

PATIENT
  Age: 75 Year
  Sex: Female
  Weight: 144 kg

DRUGS (3)
  1. COUMADIN [Concomitant]
  2. TYVASO [Suspect]
     Indication: PULMONARY ARTERIAL HYPERTENSION
     Dosage: 18-54 MICROGRAMS, INHALATION
     Route: 055
     Dates: start: 20110609
  3. REVATIO [Concomitant]

REACTIONS (3)
  - RESPIRATORY FAILURE [None]
  - PULMONARY HYPERTENSION [None]
  - HYPOTENSION [None]
